FAERS Safety Report 16478841 (Version 1)
Quarter: 2019Q2

REPORT INFORMATION
  Report Type: Spontaneous
  Country: US (occurrence: US)
  Receive Date: 20190626
  Receipt Date: 20190626
  Transmission Date: 20190711
  Serious: No
  Sender: FDA-Public Use
  Company Number: US-CELGENEUS-USA-20190607740

PATIENT
  Age: 71 Year
  Sex: Male
  Weight: 200 kg

DRUGS (5)
  1. THALOMID [Suspect]
     Active Substance: THALIDOMIDE
     Indication: OFF LABEL USE
     Dosage: 50 MILLIGRAM
     Route: 048
     Dates: start: 201906
  2. THALOMID [Suspect]
     Active Substance: THALIDOMIDE
     Indication: SOFT TISSUE SARCOMA
     Dosage: 200 MILLIGRAM
     Route: 048
     Dates: start: 201904
  3. XARELTO [Concomitant]
     Active Substance: RIVAROXABAN
     Indication: PRODUCT USED FOR UNKNOWN INDICATION
     Route: 065
  4. THALOMID [Suspect]
     Active Substance: THALIDOMIDE
     Indication: MALIGNANT CONNECTIVE TISSUE NEOPLASM
     Dosage: 200 MILLIGRAM
     Route: 048
     Dates: start: 201902
  5. THALOMID [Suspect]
     Active Substance: THALIDOMIDE
     Indication: ANGIOSARCOMA
     Dosage: 150 MILLIGRAM
     Route: 048
     Dates: start: 201810

REACTIONS (2)
  - Gait disturbance [Not Recovered/Not Resolved]
  - Neuropathy peripheral [Not Recovered/Not Resolved]

NARRATIVE: CASE EVENT DATE: 201904
